FAERS Safety Report 25597061 (Version 5)
Quarter: 2025Q4

REPORT INFORMATION
  Report Type: Spontaneous
  Country: NZ (occurrence: NZ)
  Receive Date: 20250723
  Receipt Date: 20251218
  Transmission Date: 20260117
  Serious: Yes (Other)
  Sender: MYLAN
  Company Number: NZ-MYLANLABS-2023M1121518

PATIENT
  Age: 35 Year
  Sex: Female

DRUGS (1)
  1. CLOZARIL [Suspect]
     Active Substance: CLOZAPINE
     Indication: Schizophrenia
     Dosage: UNK
     Route: 061

REACTIONS (14)
  - Blood creatinine increased [Unknown]
  - Blood phosphorus increased [Not Recovered/Not Resolved]
  - Blood potassium increased [Unknown]
  - Blood albumin decreased [Unknown]
  - Immature granulocyte count increased [Unknown]
  - Haemoglobin decreased [Not Recovered/Not Resolved]
  - Mean cell haemoglobin decreased [Not Recovered/Not Resolved]
  - Haematocrit decreased [Recovering/Resolving]
  - Neutrophil count increased [Not Recovered/Not Resolved]
  - Lymphocyte count decreased [Recovering/Resolving]
  - Mean cell haemoglobin concentration decreased [Not Recovered/Not Resolved]
  - Blood urea increased [Unknown]
  - Red blood cell count decreased [Recovering/Resolving]
  - Eosinophil count increased [Unknown]

NARRATIVE: CASE EVENT DATE: 20231031
